FAERS Safety Report 19951686 (Version 3)
Quarter: 2021Q4

REPORT INFORMATION
  Report Type: Spontaneous
  Country: US (occurrence: US)
  Receive Date: 20211013
  Receipt Date: 20211127
  Transmission Date: 20220304
  Serious: No
  Sender: FDA-Public Use
  Company Number: US-GSKCCFUS-CASE-01184189_AE-69337

PATIENT
  Sex: Female

DRUGS (1)
  1. BREO ELLIPTA [Suspect]
     Active Substance: FLUTICASONE FUROATE\VILANTEROL TRIFENATATE
     Indication: Product used for unknown indication
     Dosage: 1 PUFF(S), QD (100/25 MCG)
     Route: 055
     Dates: start: 202108

REACTIONS (3)
  - Asthma [Not Recovered/Not Resolved]
  - Dyspnoea [Not Recovered/Not Resolved]
  - Product complaint [Unknown]
